FAERS Safety Report 7273192-7 (Version None)
Quarter: 2011Q1

REPORT INFORMATION
  Report Type: 
  Country: None (occurrence: None)
  Receive Date: 20110203
  Receipt Date: 20110125
  Transmission Date: 20110831
  Serious: Yes (Death, Hospitalization)
  Sender: FDA-Public Use
  Company Number: US-JNJFOC-20110101681

PATIENT
  Sex: Male

DRUGS (12)
  1. FENATANYL [Concomitant]
     Indication: PAIN
  2. PREDNISONE [Concomitant]
     Indication: ARTHRITIS
  3. STELARA [Suspect]
     Indication: PSORIASIS
     Route: 058
  4. FUROSEMIDE [Concomitant]
     Indication: HYPERTENSION
  5. NIFEDIPINE [Concomitant]
     Indication: RENAL FAILURE
  6. LABETALOL HCL [Concomitant]
     Indication: HYPERTENSION
  7. DARBEPOETIN ALFA [Concomitant]
     Indication: ANAEMIA
  8. STELARA [Suspect]
     Route: 058
  9. NORVASC [Concomitant]
  10. NIFEDIPINE [Concomitant]
     Indication: HYPERTENSION
  11. VICODIN [Concomitant]
  12. FUROSEMIDE [Concomitant]
     Indication: RENAL FAILURE

REACTIONS (3)
  - OEDEMA PERIPHERAL [None]
  - RENAL FAILURE [None]
  - HYPOTENSION [None]
